FAERS Safety Report 5575713-9 (Version None)
Quarter: 2007Q4

REPORT INFORMATION
  Report Type: 
  Country: None (occurrence: None)
  Receive Date: 20071226
  Receipt Date: 20071210
  Transmission Date: 20080405
  Serious: Yes (Other)
  Sender: FDA-Public Use
  Company Number: ADE2007-0081

PATIENT
  Age: 58 Year
  Sex: Male
  Weight: 92 kg

DRUGS (6)
  1. SIMVASTATIN [Suspect]
     Indication: HYPERCHOLESTEROLAEMIA
     Dosage: 40MG - PO
     Route: 048
     Dates: start: 20050209, end: 20060701
  2. ASPIRIN [Concomitant]
  3. ATENOLOL [Concomitant]
  4. BENDROFLUMETHIAZIDE [Concomitant]
  5. DIPYRIDAMOLE [Concomitant]
  6. NIFEDIPINE [Concomitant]

REACTIONS (3)
  - AFFECTIVE DISORDER [None]
  - FEAR [None]
  - SUICIDAL IDEATION [None]
